FAERS Safety Report 18139578 (Version 2)
Quarter: 2020Q3

REPORT INFORMATION
  Report Type: Spontaneous
  Country: US (occurrence: US)
  Receive Date: 20200812
  Receipt Date: 20200921
  Transmission Date: 20201103
  Serious: No
  Sender: FDA-Public Use
  Company Number: US-PFIZER INC-2020307378

PATIENT
  Age: 74 Year
  Sex: Female
  Weight: 122.47 kg

DRUGS (1)
  1. LYRICA [Suspect]
     Active Substance: PREGABALIN
     Indication: NEUROPATHY PERIPHERAL
     Dosage: 75MG, 2X/DAY IN THE MORNING AND AT NIGHT

REACTIONS (2)
  - Chronic obstructive pulmonary disease [Unknown]
  - Body height decreased [Unknown]
